FAERS Safety Report 19168690 (Version 11)
Quarter: 2025Q1

REPORT INFORMATION
  Report Type: Report from Study
  Country: CO (occurrence: CO)
  Receive Date: 20210422
  Receipt Date: 20250129
  Transmission Date: 20250408
  Serious: Yes (Hospitalization, Other)
  Sender: TAKEDA
  Company Number: CO-TAKEDA-2020TUS020483

PATIENT
  Age: 91 Year
  Sex: Male
  Weight: 76 kg

DRUGS (6)
  1. VEDOLIZUMAB [Suspect]
     Active Substance: VEDOLIZUMAB
     Indication: Colitis ulcerative
  2. VEDOLIZUMAB [Suspect]
     Active Substance: VEDOLIZUMAB
  3. VEDOLIZUMAB [Suspect]
     Active Substance: VEDOLIZUMAB
  4. VEDOLIZUMAB [Suspect]
     Active Substance: VEDOLIZUMAB
     Dosage: 300 MILLIGRAM, Q3MONTHS
  5. VEDOLIZUMAB [Suspect]
     Active Substance: VEDOLIZUMAB
  6. COVID-19 vaccine [Concomitant]

REACTIONS (13)
  - Femur fracture [Recovering/Resolving]
  - Hip fracture [Unknown]
  - Multiple injuries [Recovering/Resolving]
  - Fall [Unknown]
  - COVID-19 [Recovering/Resolving]
  - Pneumonia [Recovered/Resolved]
  - Malaise [Recovering/Resolving]
  - Weight decreased [Unknown]
  - Abdominal discomfort [Recovered/Resolved]
  - Diarrhoea [Recovered/Resolved]
  - Joint injury [Unknown]
  - Off label use [Unknown]
  - Nasal congestion [Recovered/Resolved]

NARRATIVE: CASE EVENT DATE: 20200701
